FAERS Safety Report 12454673 (Version 1)
Quarter: 2016Q2

REPORT INFORMATION
  Report Type: Spontaneous
  Country: US (occurrence: None)
  Receive Date: 20160609
  Receipt Date: 20160609
  Transmission Date: 20160815
  Serious: Yes (Other)
  Sender: FDA-Public Use
  Company Number: None

PATIENT
  Age: 44 Year
  Sex: Female
  Weight: 99.79 kg

DRUGS (2)
  1. IBUPROFEN. [Concomitant]
     Active Substance: IBUPROFEN
  2. MIRENA [Suspect]
     Active Substance: LEVONORGESTREL
     Indication: MENORRHAGIA
     Dosage: 1 IUD IUD VAGINAL
     Route: 067
     Dates: start: 20160111, end: 20160520

REACTIONS (6)
  - Depression [None]
  - Menorrhagia [None]
  - Muscle spasms [None]
  - Weight increased [None]
  - Abdominal pain [None]
  - Complication of device removal [None]

NARRATIVE: CASE EVENT DATE: 20160118
